FAERS Safety Report 4554455-2 (Version None)
Quarter: 2005Q1

REPORT INFORMATION
  Report Type: 
  Country: None (occurrence: None)
  Receive Date: 20041227
  Receipt Date: 20040917
  Transmission Date: 20050727
  Serious: No
  Sender: FDA-Public Use
  Company Number: 04P-163-0268547-00

PATIENT
  Age: 65 Year
  Sex: Male
  Weight: 113.9 kg

DRUGS (9)
  1. HUMIRA [Suspect]
     Indication: INFLAMMATION
     Dosage: 40 MG, 1 IN 2 WK, SUBCUTANEOUS
     Route: 058
     Dates: start: 20030301
  2. HUMIRA [Suspect]
     Indication: SPONDYLOARTHROPATHY
     Dosage: 40 MG, 1 IN 2 WK, SUBCUTANEOUS
     Route: 058
     Dates: start: 20030301
  3. HUMIRA [Suspect]
     Indication: SYNOVITIS
     Dosage: 40 MG, 1 IN 2 WK, SUBCUTANEOUS
     Route: 058
     Dates: start: 20030301
  4. METHOTREXATE [Suspect]
     Dosage: 7.5 MG, 1 IN 1 WK
     Dates: start: 19990801
  5. ATENOLOL [Concomitant]
  6. DIGOXIN [Concomitant]
  7. GLIPIZIDE [Concomitant]
  8. GLUCOPHAGE [Concomitant]
  9. PREDNISONE [Concomitant]

REACTIONS (1)
  - PROSTATE CANCER [None]
